FAERS Safety Report 14694046 (Version 1)
Quarter: 2018Q1

REPORT INFORMATION
  Report Type: Spontaneous
  Country: US (occurrence: US)
  Receive Date: 20180329
  Receipt Date: 20180329
  Transmission Date: 20180509
  Serious: No
  Sender: FDA-Public Use
  Company Number: US-PFIZER INC-2018128063

PATIENT
  Age: 65 Year
  Sex: Female

DRUGS (8)
  1. LYRICA [Suspect]
     Active Substance: PREGABALIN
     Indication: INTERVERTEBRAL DISC COMPRESSION
  2. METAXALONE. [Concomitant]
     Active Substance: METAXALONE
     Indication: MUSCLE SPASMS
     Dosage: 800MG TABLETS, UP TO 3 TIMES PER DAY
  3. LYRICA [Suspect]
     Active Substance: PREGABALIN
     Indication: BACK DISORDER
  4. TRAMADOL. [Concomitant]
     Active Substance: TRAMADOL
     Indication: BACK DISORDER
     Dosage: 1 TABLET EVERY 6 HOURS AS NEEDED, MAX 4 PER DAY
  5. LYRICA [Suspect]
     Active Substance: PREGABALIN
     Indication: FIBROMYALGIA
     Dosage: 100 MG, 3X/DAY
  6. LYRICA [Suspect]
     Active Substance: PREGABALIN
     Indication: SCOLIOSIS
     Dosage: TAKE IT LATER IN THE MORNING OR LATER IN THE EVENING
  7. TRAMADOL. [Concomitant]
     Active Substance: TRAMADOL
     Indication: INFLAMMATION
  8. LYRICA [Suspect]
     Active Substance: PREGABALIN
     Indication: NEURITIS

REACTIONS (2)
  - Renal disorder [Unknown]
  - Intentional product misuse [Not Recovered/Not Resolved]

NARRATIVE: CASE EVENT DATE: 2016
